FAERS Safety Report 6918358-8 (Version None)
Quarter: 2010Q3

REPORT INFORMATION
  Report Type: 
  Country: None (occurrence: None)
  Receive Date: 20100811
  Receipt Date: 20100803
  Transmission Date: 20110219
  Serious: No
  Sender: FDA-Public Use
  Company Number: US-BIOGENIDEC-2010BI026762

PATIENT
  Sex: Male

DRUGS (1)
  1. TYSABRI [Suspect]
     Indication: MULTIPLE SCLEROSIS
     Route: 042
     Dates: start: 20100331

REACTIONS (5)
  - DECREASED APPETITE [None]
  - DYSPHAGIA [None]
  - ERYTHEMA [None]
  - GAIT DISTURBANCE [None]
  - RASH [None]
